FAERS Safety Report 16874226 (Version 1)
Quarter: 2019Q4

REPORT INFORMATION
  Report Type: Spontaneous
  Country: PT (occurrence: PT)
  Receive Date: 20191001
  Receipt Date: 20191001
  Transmission Date: 20200122
  Serious: Yes (Other)
  Sender: FDA-Public Use
  Company Number: PT-MYLANLABS-2019M1091265

PATIENT
  Sex: Male

DRUGS (8)
  1. GEMCITABINE. [Suspect]
     Active Substance: GEMCITABINE
     Indication: FOLLICULAR THYROID CANCER
     Dosage: UNK, CYCLE 11 CYCLES
     Route: 065
     Dates: start: 201511, end: 201601
  2. GEMCITABINE. [Suspect]
     Active Substance: GEMCITABINE
     Dosage: UNK 3 CYCLES
     Route: 065
     Dates: start: 201711, end: 201802
  3. OXALIPLATIN. [Suspect]
     Active Substance: OXALIPLATIN
     Indication: FOLLICULAR THYROID CANCER
     Dosage: UNK, CYCLE 11 CYCLES
     Route: 065
     Dates: start: 201511, end: 201601
  4. SUNITINIB [Concomitant]
     Active Substance: SUNITINIB
     Indication: FOLLICULAR THYROID CANCER
     Dosage: UNK
     Route: 065
     Dates: start: 201511, end: 201605
  5. OXALIPLATIN. [Suspect]
     Active Substance: OXALIPLATIN
     Dosage: UNK, CYCLE 3 CYCLES
     Route: 065
     Dates: start: 201711, end: 201802
  6. OXALIPLATIN. [Suspect]
     Active Substance: OXALIPLATIN
     Dosage: UNK, CYCLE 2-2 WEEKS
     Route: 065
     Dates: start: 201806
  7. SUNITINIB [Concomitant]
     Active Substance: SUNITINIB
     Dosage: UNK, QD
     Route: 065
     Dates: start: 2015
  8. GEMCITABINE. [Suspect]
     Active Substance: GEMCITABINE
     Dosage: UNK UNK, CYCLE 2-2 WEEKS
     Route: 065
     Dates: start: 201806

REACTIONS (2)
  - Neurotoxicity [Unknown]
  - Off label use [Not Recovered/Not Resolved]
